FAERS Safety Report 9726008 (Version 1)
Quarter: 2013Q4

REPORT INFORMATION
  Report Type: Spontaneous
  Country: CA (occurrence: None)
  Receive Date: 20131118
  Receipt Date: 20131118
  Transmission Date: 20140711
  Serious: Yes (Other)
  Sender: FDA-Public Use
  Company Number: 2013038954

PATIENT
  Age: 28 Year
  Sex: Female

DRUGS (1)
  1. PRIVIGEN (IMMUNE GLOBULIN INTRAVENOUS (HUMAN) 10% LIQUID) [Suspect]
     Indication: MYASTHENIA GRAVIS
     Dosage: 120 G TOTAL, INTRAVENOUS (NOT OTHERWISE SPECIFIED)?
     Route: 042
     Dates: start: 20130831, end: 20130901

REACTIONS (3)
  - Delayed haemolytic transfusion reaction [None]
  - Off label use [None]
  - Anaemia [None]
